FAERS Safety Report 6844357-0 (Version None)
Quarter: 2010Q3

REPORT INFORMATION
  Report Type: 
  Country: None (occurrence: None)
  Receive Date: 20100715
  Receipt Date: 20100709
  Transmission Date: 20110219
  Serious: Yes (Other)
  Sender: FDA-Public Use
  Company Number: CA-ROCHE-713955

PATIENT
  Age: 64 Year
  Sex: Male

DRUGS (4)
  1. AVASTIN [Suspect]
     Dosage: FORM REPORTED AS INJECTION
     Route: 031
  2. RANIBIZUMAB [Suspect]
     Dosage: FORM REPORTED AS INJECTION
     Route: 031
  3. CANDESARTAN [Concomitant]
     Indication: HYPERTENSION
  4. RABEPRAZOLE SODIUM [Concomitant]

REACTIONS (1)
  - IIIRD NERVE PARALYSIS [None]
